FAERS Safety Report 7301563-9 (Version None)
Quarter: 2011Q1

REPORT INFORMATION
  Report Type: 
  Country: None (occurrence: None)
  Receive Date: 20110218
  Receipt Date: 20110207
  Transmission Date: 20110831
  Serious: Yes (Other)
  Sender: FDA-Public Use
  Company Number: JP-PFIZER INC-2011009128

PATIENT
  Age: 84 Year
  Sex: Female
  Weight: 31.8 kg

DRUGS (8)
  1. ANCARON [Suspect]
     Indication: VENTRICULAR TACHYCARDIA
     Dosage: 200 MG, 1X/DAY
     Route: 048
     Dates: start: 20101220, end: 20101224
  2. SELOKEN [Concomitant]
     Dosage: UNK
     Dates: start: 20101211
  3. MAGNESIUM OXIDE [Concomitant]
     Dosage: UNK
     Dates: start: 20081024
  4. LOCHOL [Concomitant]
     Dosage: UNK
     Dates: start: 20101211
  5. LONGES [Concomitant]
     Dosage: UNK
     Dates: start: 20101119
  6. PIPERACILLIN SODIUM [Interacting]
     Indication: PNEUMONIA
     Dosage: 2 G, 2X/DAY
     Route: 042
     Dates: start: 20101216, end: 20101221
  7. VALSARTAN [Concomitant]
     Dosage: UNK
     Dates: start: 20101211
  8. BUFFERIN [Concomitant]
     Dosage: UNK
     Dates: start: 20081024

REACTIONS (2)
  - DRUG INTERACTION [None]
  - THROMBOCYTOPENIA [None]
